FAERS Safety Report 25312538 (Version 1)
Quarter: 2025Q2

REPORT INFORMATION
  Report Type: Spontaneous
  Country: US (occurrence: US)
  Receive Date: 20250514
  Receipt Date: 20250514
  Transmission Date: 20250716
  Serious: No
  Sender: HIKMA
  Company Number: HIKM2407492

PATIENT
  Age: 78 Year
  Sex: Female

DRUGS (1)
  1. VALRUBICIN [Suspect]
     Active Substance: VALRUBICIN
     Indication: Bladder cancer
     Dosage: 800 MILLIGRAM, WEEKLY
     Route: 043
     Dates: start: 20240820

REACTIONS (2)
  - Product use issue [Unknown]
  - Product dose omission issue [Unknown]
